FAERS Safety Report 5580243-4 (Version None)
Quarter: 2007Q4

REPORT INFORMATION
  Report Type: 
  Country: None (occurrence: None)
  Receive Date: 20071228
  Receipt Date: 20071220
  Transmission Date: 20080405
  Serious: Yes (Death, Other)
  Sender: FDA-Public Use
  Company Number: 2007-02654

PATIENT
  Age: 74 Year
  Sex: Male

DRUGS (2)
  1. VELCADE [Suspect]
     Indication: MULTIPLE MYELOMA
     Dosage: 1.80 MG, INTRAVENOUS
     Route: 042
     Dates: start: 20070205, end: 20070303
  2. DEXAMETHASONE [Concomitant]

REACTIONS (3)
  - CARDIAC FAILURE [None]
  - CEREBRAL INFARCTION [None]
  - RESPIRATORY DISTRESS [None]
